FAERS Safety Report 14060638 (Version 2)
Quarter: 2017Q4

REPORT INFORMATION
  Report Type: Spontaneous
  Country: US (occurrence: US)
  Receive Date: 20171007
  Receipt Date: 20171024
  Transmission Date: 20180321
  Serious: Yes (Death, Life-Threatening, Other)
  Sender: FDA-Public Use
  Company Number: US-ACCORD-059521

PATIENT
  Age: 66 Year
  Sex: Male

DRUGS (2)
  1. CLOZAPINE. [Suspect]
     Active Substance: CLOZAPINE
     Indication: SCHIZOPHRENIA
  2. QUETIAPINE. [Suspect]
     Active Substance: QUETIAPINE
     Indication: SCHIZOPHRENIA

REACTIONS (10)
  - Gastrointestinal necrosis [Fatal]
  - Klebsiella infection [Fatal]
  - Faecal vomiting [Recovered/Resolved]
  - Abdominal distension [Recovered/Resolved]
  - Septic shock [Fatal]
  - Aspiration [Unknown]
  - Escherichia infection [Fatal]
  - Acute respiratory distress syndrome [Recovered/Resolved]
  - Gastrointestinal hypomotility [Unknown]
  - Faecaloma [Recovered/Resolved]
